FAERS Safety Report 7921972-4 (Version None)
Quarter: 2011Q4

REPORT INFORMATION
  Report Type: 
  Country: None (occurrence: None)
  Receive Date: 20111117
  Receipt Date: 20111108
  Transmission Date: 20120403
  Serious: Yes (Other)
  Sender: FDA-Public Use
  Company Number: FR-ASTRAZENECA-2011SE67653

PATIENT
  Sex: Male

DRUGS (2)
  1. NEXIUM [Suspect]
     Indication: GASTROOESOPHAGEAL REFLUX DISEASE
     Route: 048
     Dates: start: 20100501, end: 20110801
  2. NEXIUM [Suspect]
     Route: 048
     Dates: start: 20110801, end: 20111025

REACTIONS (3)
  - GASTRIC ULCER [None]
  - ARTHRALGIA [None]
  - MYALGIA [None]
